FAERS Safety Report 9195225 (Version 1)
Quarter: 2013Q1

REPORT INFORMATION
  Report Type: Spontaneous
  Country: US (occurrence: US)
  Receive Date: 20130328
  Receipt Date: 20130328
  Transmission Date: 20140127
  Serious: No
  Sender: FDA-Public Use
  Company Number: US-ALLERGAN-1300595US

PATIENT
  Age: 22 Year
  Sex: Female

DRUGS (1)
  1. LATISSE 0.03% [Suspect]
     Indication: GROWTH OF EYELASHES
     Dosage: 1 GTT, QHS
     Route: 061
     Dates: start: 201212, end: 20130109

REACTIONS (4)
  - Incorrect dose administered [Unknown]
  - Sensation of pressure [Recovered/Resolved]
  - Eye pain [Recovered/Resolved]
  - Iris hyperpigmentation [Unknown]
